FAERS Safety Report 4940670-2 (Version None)
Quarter: 2006Q1

REPORT INFORMATION
  Report Type: 
  Country: None (occurrence: None)
  Receive Date: 20060127
  Receipt Date: 20051019
  Transmission Date: 20060701
  Serious: Yes (Other)
  Sender: FDA-Public Use
  Company Number: 2005145386

PATIENT
  Age: 78 Year
  Sex: Male
  Weight: 72.5755 kg

DRUGS (6)
  1. LYRICA [Suspect]
     Indication: POST HERPETIC NEURALGIA
     Dosage: 100 MG (50 MG,2 IN 1D)
     Dates: start: 20050101
  2. TRILEPTAL [Concomitant]
  3. KEPPRA [Concomitant]
  4. LAMICTAL [Concomitant]
  5. VICODIN [Concomitant]
  6. FENTANYL [Concomitant]

REACTIONS (1)
  - DRUG INEFFECTIVE [None]
